FAERS Safety Report 8170719-8 (Version None)
Quarter: 2012Q1

REPORT INFORMATION
  Report Type: 
  Country: None (occurrence: None)
  Receive Date: 20120104
  Receipt Date: 20111026
  Transmission Date: 20120608
  Serious: No
  Sender: FDA-Public Use
  Company Number: 2011HGS-002695

PATIENT
  Age: 34 Year
  Sex: Female
  Weight: 90 kg

DRUGS (4)
  1. BENADRYL (CLONALIN) (SODIUM CITRATE, MENTHOL, DIPHENHYDRAMINE HYDROCHL [Concomitant]
  2. BENLYSTA [Suspect]
     Indication: SYSTEMIC LUPUS ERYTHEMATOSUS
     Dosage: 10 MG/KG, 1 IN 14 D, INTRAVENOUS
     Route: 042
     Dates: start: 20110929, end: 20111013
  3. SOLU-CORTEF (HYDROCOTISONE SODIUM SUCCINATE) (HYDROCORTISONE SODIUM SU [Concomitant]
  4. ACETAMINOPHEN [Concomitant]

REACTIONS (1)
  - PAIN IN EXTREMITY [None]
